FAERS Safety Report 10061144 (Version 2)
Quarter: 2014Q2

REPORT INFORMATION
  Report Type: Spontaneous
  Country: US (occurrence: US)
  Receive Date: 20140406
  Receipt Date: 20140603
  Transmission Date: 20141212
  Serious: Yes (Death, Other)
  Sender: FDA-Public Use
  Company Number: US-BRISTOL-MYERS SQUIBB COMPANY-20592887

PATIENT
  Age: 50 Year
  Sex: Female

DRUGS (22)
  1. BYETTA [Suspect]
     Dates: start: 20120202, end: 20120427
  2. VICTOZA [Suspect]
     Dates: start: 20120714, end: 20120915
  3. CELEXA [Concomitant]
  4. LANTUS [Concomitant]
     Dosage: 1DF=60UNITS
  5. ZOFRAN [Concomitant]
     Indication: NAUSEA
     Route: 048
  6. COMPAZINE [Concomitant]
     Indication: NAUSEA
     Route: 048
  7. COMPAZINE [Concomitant]
     Indication: VOMITING
     Route: 048
  8. VANCOMYCIN [Concomitant]
  9. LOVENOX [Concomitant]
  10. DUONEB [Concomitant]
  11. NOVOLOG [Concomitant]
  12. LEVAQUIN [Concomitant]
  13. ROCEPHIN [Concomitant]
  14. LASIX [Concomitant]
  15. NICOTROL [Concomitant]
  16. CEPACOL [Concomitant]
     Dosage: 1DF=1LOZENGE
  17. DULCOLAX [Concomitant]
  18. MILK OF MAGNESIA [Concomitant]
  19. AMBIEN [Concomitant]
  20. LANOLIN [Concomitant]
  21. MAALOX [Concomitant]
  22. TYLENOL [Concomitant]

REACTIONS (2)
  - Pancreatic carcinoma [Fatal]
  - Multi-organ failure [Unknown]
